FAERS Safety Report 23291761 (Version 1)
Quarter: 2023Q4

REPORT INFORMATION
  Report Type: Report from Study
  Country: NL (occurrence: NL)
  Receive Date: 20231213
  Receipt Date: 20231213
  Transmission Date: 20240110
  Serious: Yes (Other)
  Sender: FDA-Public Use
  Company Number: NL-ABBVIE-5400454

PATIENT
  Age: 73 Year
  Sex: Male

DRUGS (7)
  1. CARBIDOPA\LEVODOPA [Suspect]
     Active Substance: CARBIDOPA\LEVODOPA
     Indication: Parkinson^s disease
     Dosage: MD: 6.2ML, CD: 3.7ML/H, ED: 1.5ML, CND: 2.6ML/H, END: 1.5ML, ?REMAINS AT 16 HOURS,
     Route: 050
  2. CARBIDOPA\LEVODOPA [Suspect]
     Active Substance: CARBIDOPA\LEVODOPA
     Dosage: MD: 6.2ML, CD: 3.7ML/H, ED: 1.5ML, CND: 2.6ML/H, ?REMAINS AT 16 HOURS,
     Route: 050
  3. CARBIDOPA\LEVODOPA [Suspect]
     Active Substance: CARBIDOPA\LEVODOPA
     Dosage: MD: 6.2ML; CD: 3.7ML/H; ED: 1.5ML; CND: 3.0ML/H; END: 1.5ML THERAPY END DATE DEC 2023
     Route: 050
     Dates: start: 20231205
  4. CARBIDOPA\LEVODOPA [Suspect]
     Active Substance: CARBIDOPA\LEVODOPA
     Dosage: CND: 2.8ML/H, GOES TO 24 HOURS, FIRST ADMIN DATE AND LAST ADMIN DATE 2023
     Route: 050
  5. CARBIDOPA\LEVODOPA [Suspect]
     Active Substance: CARBIDOPA\LEVODOPA
     Dosage: GOES TO 24 HOURS, FIRST ADMIN DATE DEC 2023
     Route: 050
  6. CARBIDOPA\LEVODOPA [Suspect]
     Active Substance: CARBIDOPA\LEVODOPA
     Dosage: DURATION TEXT: GOES TO 24 HOURS THERAPY END DATE 2023
     Route: 050
     Dates: start: 20230706
  7. MOVICOLON [Suspect]
     Active Substance: POLYETHYLENE GLYCOL 3350\POTASSIUM CHLORIDE\SODIUM BICARBONATE\SODIUM CHLORIDE
     Indication: Bowel movement irregularity
     Route: 065

REACTIONS (15)
  - Knee operation [Not Recovered/Not Resolved]
  - Stress [Not Recovered/Not Resolved]
  - Muscle rigidity [Not Recovered/Not Resolved]
  - Anal incontinence [Unknown]
  - Infrequent bowel movements [Not Recovered/Not Resolved]
  - Tremor [Not Recovered/Not Resolved]
  - Gait disturbance [Not Recovered/Not Resolved]
  - Dyskinesia [Not Recovered/Not Resolved]
  - Psychiatric symptom [Not Recovered/Not Resolved]
  - Bradykinesia [Not Recovered/Not Resolved]
  - Procedural pain [Not Recovered/Not Resolved]
  - Underdose [Not Recovered/Not Resolved]
  - On and off phenomenon [Not Recovered/Not Resolved]
  - Restless legs syndrome [Not Recovered/Not Resolved]
  - Restlessness [Unknown]

NARRATIVE: CASE EVENT DATE: 20230101
